FAERS Safety Report 15329983 (Version 1)
Quarter: 2018Q3

REPORT INFORMATION
  Report Type: Spontaneous
  Country: US (occurrence: US)
  Receive Date: 20180824
  Receipt Date: 20180824
  Transmission Date: 20181010
  Serious: Yes (Other)
  Sender: FDA-Public Use
  Company Number: None

PATIENT
  Age: 71 Year
  Sex: Male
  Weight: 94.05 kg

DRUGS (11)
  1. CHOLECALCIFEROL (VIT D3) 2,000UNIT [Concomitant]
  2. LOSARTAN 50MG TAB [Concomitant]
  3. OMEPRAZOLE 20MG EC CAP [Concomitant]
  4. METOPROLOL SUCCINATE 100MG SA TAB [Concomitant]
  5. KETOCONAZOLE 2% CREAM [Concomitant]
  6. TAMSULOSIN HCL 0.4MG CAP [Concomitant]
  7. WARFARIN NA (EXELAN) 5MG TAB [Concomitant]
  8. INSULIN,ASPART 100UN/ML NOVO FLEXPEN 3ML INJECT [Concomitant]
  9. HARVONI [Suspect]
     Active Substance: LEDIPASVIR\SOFOSBUVIR
  10. AMILORIDE HCL 5MG TAB [Concomitant]
  11. KETOCONAZOLE 2% SHAMPOO SHAMPOO [Concomitant]

REACTIONS (1)
  - Hepatic cirrhosis [None]

NARRATIVE: CASE EVENT DATE: 20180716
